FAERS Safety Report 6720602-7 (Version None)
Quarter: 2010Q2

REPORT INFORMATION
  Report Type: 
  Country: None (occurrence: None)
  Receive Date: 20100510
  Receipt Date: 20100428
  Transmission Date: 20101027
  Serious: Yes (Death, Hospitalization)
  Sender: FDA-Public Use
  Company Number: 2009AC000037

PATIENT
  Age: 80 Year
  Sex: Female

DRUGS (31)
  1. DIGOXIN [Suspect]
     Indication: CARDIAC DISORDER
     Dosage: 0.125 MG; QD; PO
     Route: 048
     Dates: start: 20080201, end: 20080501
  2. ISORDIL [Concomitant]
  3. LANTUS [Concomitant]
  4. XANAX [Concomitant]
  5. VITAMIN B-12 [Concomitant]
  6. K-DUR [Concomitant]
  7. XOPENEX [Concomitant]
  8. BUSPAR [Concomitant]
  9. COREG [Concomitant]
  10. APRESOLINE [Concomitant]
  11. SYNTHROID [Concomitant]
  12. COZAAR [Concomitant]
  13. IRON [Concomitant]
  14. SPIRONOLACTONE [Concomitant]
  15. OXYGEN [Concomitant]
  16. COUMADIN [Concomitant]
  17. KLOR-CON [Concomitant]
  18. ISOSORBIDE [Concomitant]
  19. FUROSEMIDE [Concomitant]
  20. HYDRALAZINE HCL [Concomitant]
  21. INSULIN [Concomitant]
  22. IMDUR [Concomitant]
  23. SYNTHROID [Concomitant]
  24. NITROGLYCERIN [Concomitant]
  25. LASIX [Concomitant]
  26. LOVENOX [Concomitant]
  27. ROCEPHIN [Concomitant]
  28. ZITHROMAX [Concomitant]
  29. ULTRAM [Concomitant]
  30. PLAVIX [Concomitant]
  31. CIPRO [Concomitant]

REACTIONS (47)
  - ANAEMIA [None]
  - ANKLE FRACTURE [None]
  - ANXIETY [None]
  - AORTIC VALVE SCLEROSIS [None]
  - ARRHYTHMIA SUPRAVENTRICULAR [None]
  - ARTHRALGIA [None]
  - ATRIAL FLUTTER [None]
  - BLOOD POTASSIUM DECREASED [None]
  - BRADYCARDIA [None]
  - BRAIN NATRIURETIC PEPTIDE INCREASED [None]
  - BUNDLE BRANCH BLOCK RIGHT [None]
  - CARDIAC DISORDER [None]
  - CARDIAC FAILURE CHRONIC [None]
  - CARDIAC FAILURE CONGESTIVE [None]
  - CHRONIC OBSTRUCTIVE PULMONARY DISEASE [None]
  - CONDITION AGGRAVATED [None]
  - CONFUSIONAL STATE [None]
  - DIARRHOEA [None]
  - DRUG LEVEL BELOW THERAPEUTIC [None]
  - ECCHYMOSIS [None]
  - FALL [None]
  - HEART RATE IRREGULAR [None]
  - HYPOAESTHESIA [None]
  - HYPOTENSION [None]
  - INTERNATIONAL NORMALISED RATIO DECREASED [None]
  - IRON DEFICIENCY ANAEMIA [None]
  - JOINT SWELLING [None]
  - KLEBSIELLA INFECTION [None]
  - MITRAL VALVE CALCIFICATION [None]
  - MITRAL VALVE INCOMPETENCE [None]
  - NASAL CONGESTION [None]
  - OCCULT BLOOD POSITIVE [None]
  - ORTHOPNOEA [None]
  - PARAPROTEINAEMIA [None]
  - POSTNASAL DRIP [None]
  - PSORIASIS [None]
  - PULMONARY HYPERTENSION [None]
  - RENAL FAILURE ACUTE [None]
  - RESPIRATORY ACIDOSIS [None]
  - RESPIRATORY FAILURE [None]
  - RHINORRHOEA [None]
  - TRICUSPID VALVE INCOMPETENCE [None]
  - TYPE 2 DIABETES MELLITUS [None]
  - UNEVALUABLE EVENT [None]
  - URINARY TRACT INFECTION [None]
  - VENOUS INSUFFICIENCY [None]
  - VITAMIN B12 DECREASED [None]
